FAERS Safety Report 18533979 (Version 1)
Quarter: 2020Q4

REPORT INFORMATION
  Report Type: Spontaneous
  Country: US (occurrence: US)
  Receive Date: 20201123
  Receipt Date: 20201123
  Transmission Date: 20210114
  Serious: Yes (Hospitalization)
  Sender: FDA-Public Use
  Company Number: US-AMNEAL PHARMACEUTICALS-2020-AMRX-03226

PATIENT
  Age: 1 Year
  Sex: Female
  Weight: 7 kg

DRUGS (6)
  1. VIGABATRIN. [Suspect]
     Active Substance: VIGABATRIN
     Indication: INFANTILE SPASMS
     Dosage: MIX 1 PACKET IN 10 ML WATER AND GIVE 3 ML (150MG) TWICE DAILY FOR 1 WEEK, THEN 6ML (300MG) TWICE DAI
     Route: 048
     Dates: start: 2020, end: 2020
  2. VIGABATRIN. [Suspect]
     Active Substance: VIGABATRIN
     Dosage: 500 MILLIGRAM
     Route: 048
     Dates: start: 202010, end: 202010
  3. VIGABATRIN. [Suspect]
     Active Substance: VIGABATRIN
     Dosage: 550 MILLIGRAM, BID (MIX 2 PACKETS IN 20 ML OF WATER FOR EACH DOSE AND GIVE 11 ML)
     Route: 048
     Dates: start: 2020
  4. LACTULOSE. [Concomitant]
     Active Substance: LACTULOSE
     Indication: CONSTIPATION
     Dosage: 10 MILLILITER, 1 /DAY
     Route: 065
  5. LEVOTHYROXINE. [Concomitant]
     Active Substance: LEVOTHYROXINE
     Indication: THYROID DISORDER
     Dosage: 37.5 MICROGRAM, MORNING
     Route: 065
  6. VIGABATRIN. [Suspect]
     Active Substance: VIGABATRIN
     Dosage: 550 MILLIGRAM, BID
     Route: 048
     Dates: start: 20201009, end: 202010

REACTIONS (6)
  - Respiratory rate increased [Recovered/Resolved]
  - Infantile spasms [Not Recovered/Not Resolved]
  - Dehydration [Unknown]
  - Vomiting [Unknown]
  - Seizure [Not Recovered/Not Resolved]
  - Therapy cessation [Unknown]

NARRATIVE: CASE EVENT DATE: 2020
